FAERS Safety Report 9681595 (Version 1)
Quarter: 2013Q4

REPORT INFORMATION
  Report Type: Spontaneous
  Country: US (occurrence: US)
  Receive Date: 20131111
  Receipt Date: 20131111
  Transmission Date: 20140711
  Serious: Yes (Hospitalization)
  Sender: FDA-Public Use
  Company Number: US-PFIZER INC-2013317994

PATIENT
  Age: 49 Year
  Sex: Female
  Weight: 59 kg

DRUGS (9)
  1. CALCIUM CARBONATE [Suspect]
     Dosage: 500 MG, 3X/DAY
  2. CENTRUM WOMEN UNDER 50 [Interacting]
     Indication: VITAMIN SUPPLEMENTATION
     Dosage: UNK, 1X/DAY
     Dates: start: 20131101
  3. CITALOPRAM [Interacting]
     Dosage: 20 MG, DAILY
  4. FOLIC ACID [Interacting]
     Dosage: 1 MG, UNK
  5. PROTONIX [Interacting]
     Dosage: 40 MG, 1X/DAY
  6. POTASSIUM CHLORIDE [Interacting]
     Dosage: 30 MG, 2X/DAY
  7. IRON [Interacting]
     Dosage: 1 MG, 1X/DAY
  8. LACTULOSE [Interacting]
     Dosage: 20 MG, 2X/DAY
  9. VITAMIN K [Interacting]
     Dosage: 5 MG, DAILY

REACTIONS (2)
  - Haemorrhoidal haemorrhage [Unknown]
  - Drug interaction [Unknown]
